FAERS Safety Report 5965444-5 (Version None)
Quarter: 2008Q4

REPORT INFORMATION
  Report Type: 
  Country: None (occurrence: None)
  Receive Date: 20081125
  Receipt Date: 20081121
  Transmission Date: 20090506
  Serious: Yes (Other)
  Sender: FDA-Public Use
  Company Number: US-ABBOTT-08P-163-0489181-00

PATIENT
  Sex: Female
  Weight: 70.824 kg

DRUGS (3)
  1. HUMIRA [Suspect]
     Indication: PSORIASIS
     Route: 058
     Dates: start: 20080601
  2. INSULIN [Concomitant]
     Indication: TYPE 1 DIABETES MELLITUS
  3. VALACYCLOVIR [Concomitant]
     Indication: PSORIASIS

REACTIONS (1)
  - ABORTION SPONTANEOUS [None]
